FAERS Safety Report 5502199-2 (Version None)
Quarter: 2007Q4

REPORT INFORMATION
  Report Type: 
  Country: None (occurrence: None)
  Receive Date: 20071030
  Receipt Date: 20071023
  Transmission Date: 20080405
  Serious: Yes (Hospitalization)
  Sender: FDA-Public Use
  Company Number: CA-ASTRAZENECA-2007UW14827

PATIENT
  Age: 50 Year
  Sex: Female

DRUGS (1)
  1. LOSEC [Suspect]
     Indication: GASTROOESOPHAGEAL REFLUX DISEASE
     Route: 048
     Dates: start: 19991201

REACTIONS (3)
  - CHROMATURIA [None]
  - HEPATIC ENZYME INCREASED [None]
  - HEPATITIS [None]
